FAERS Safety Report 11915107 (Version 1)
Quarter: 2016Q1

REPORT INFORMATION
  Report Type: Spontaneous
  Country: US (occurrence: US)
  Receive Date: 20160114
  Receipt Date: 20160114
  Transmission Date: 20160526
  Serious: No
  Sender: FDA-Public Use
  Company Number: US-ASTRAZENECA-2016SE00824

PATIENT
  Sex: Male
  Weight: 88.5 kg

DRUGS (7)
  1. BYDUREON [Suspect]
     Active Substance: EXENATIDE
     Indication: TYPE 2 DIABETES MELLITUS
     Route: 058
  2. FLAXSEED [Concomitant]
     Active Substance: FLAX SEED
  3. GLUCOSAMINE [Concomitant]
     Active Substance: GLUCOSAMINE
  4. L- ARGENINE [Concomitant]
  5. GINKGO BILOBA [Concomitant]
     Active Substance: GINKGO
  6. SALMON OIL [Concomitant]
     Active Substance: FISH OIL
  7. COQ10 [Concomitant]
     Active Substance: UBIDECARENONE

REACTIONS (3)
  - Dry mouth [Unknown]
  - Product quality issue [Unknown]
  - Blood glucose increased [Unknown]
